FAERS Safety Report 8505811 (Version 2)
Quarter: 2013Q4

REPORT INFORMATION
  Report Type: Spontaneous
  Country: US (occurrence: US)
  Receive Date: 20120412
  Receipt Date: 20131223
  Transmission Date: 20140711
  Serious: Yes (Other)
  Sender: FDA-Public Use
  Company Number: US-BAYER-2012-033449

PATIENT
  Age: 17 Year
  Sex: Female

DRUGS (2)
  1. YAZ [Suspect]
     Dosage: UNK
     Dates: start: 200806, end: 201006
  2. HYOSCYAMINE [Concomitant]
     Dosage: 0.125 MG, UNK

REACTIONS (9)
  - Gallbladder disorder [None]
  - Cholecystitis [None]
  - Post cholecystectomy syndrome [None]
  - Gallbladder pain [None]
  - Injury [None]
  - Pain [None]
  - Gastrointestinal disorder [None]
  - Psychological trauma [None]
  - Anxiety [None]
